FAERS Safety Report 16249640 (Version 1)
Quarter: 2019Q2

REPORT INFORMATION
  Report Type: Spontaneous
  Country: BR (occurrence: BR)
  Receive Date: 20190429
  Receipt Date: 20190429
  Transmission Date: 20190711
  Serious: Yes (Other)
  Sender: FDA-Public Use
  Company Number: BR-GLAXOSMITHKLINE-BR2019GSK070929

PATIENT
  Sex: Female

DRUGS (1)
  1. FLIXOTIDE [Suspect]
     Active Substance: FLUTICASONE PROPIONATE
     Dosage: UNK, 50 MCG

REACTIONS (2)
  - Product prescribing error [Unknown]
  - Product use issue [Unknown]
